FAERS Safety Report 23085615 (Version 2)
Quarter: 2023Q4

REPORT INFORMATION
  Report Type: Spontaneous
  Country: US (occurrence: US)
  Receive Date: 20231019
  Receipt Date: 20231227
  Transmission Date: 20240109
  Serious: No
  Sender: FDA-Public Use
  Company Number: US-PFIZER INC-PV202300105963

PATIENT
  Age: 67 Year
  Sex: Female

DRUGS (3)
  1. RETACRIT [Suspect]
     Active Substance: EPOETIN ALFA-EPBX
     Indication: Chronic kidney disease
     Dosage: 40000 IU, EVERY 2 WEEKS
     Route: 058
  2. RETACRIT [Suspect]
     Active Substance: EPOETIN ALFA-EPBX
     Indication: Anaemia
     Dosage: 40000 IU, ONCE
     Route: 058
  3. RETACRIT [Suspect]
     Active Substance: EPOETIN ALFA-EPBX
     Indication: Iron deficiency anaemia

REACTIONS (2)
  - Haemoglobin increased [Unknown]
  - Off label use [Unknown]
